FAERS Safety Report 25615696 (Version 1)
Quarter: 2025Q3

REPORT INFORMATION
  Report Type: Spontaneous
  Country: US (occurrence: US)
  Receive Date: 20250729
  Receipt Date: 20250729
  Transmission Date: 20251021
  Serious: No
  Sender: TAKEDA
  Company Number: US-TAKEDA-2025TUS066936

PATIENT

DRUGS (1)
  1. RECOMBINATE [Suspect]
     Active Substance: ANTIHEMOPHILIC FACTOR, HUMAN RECOMBINANT
     Indication: Product used for unknown indication

REACTIONS (4)
  - No adverse event [Unknown]
  - Product storage error [Unknown]
  - Product temperature excursion issue [Unknown]
  - Poor quality product administered [Unknown]
